FAERS Safety Report 4376364-4 (Version None)
Quarter: 2004Q2

REPORT INFORMATION
  Report Type: 
  Country: None (occurrence: None)
  Receive Date: 20040612
  Receipt Date: 20040526
  Transmission Date: 20050107
  Serious: Yes (Hospitalization)
  Sender: FDA-Public Use
  Company Number: JP-JNJFOC-20031203938

PATIENT
  Sex: Female
  Weight: 45.5 kg

DRUGS (24)
  1. REMICADE [Suspect]
     Route: 041
     Dates: start: 20031009
  2. REMICADE [Suspect]
     Route: 041
     Dates: start: 20031009
  3. REMICADE [Suspect]
     Route: 041
     Dates: start: 20031009
  4. REMICADE [Suspect]
     Route: 041
     Dates: start: 20031009
  5. REMICADE [Suspect]
     Route: 041
     Dates: start: 20031009
  6. REMICADE [Suspect]
     Indication: RHEUMATOID ARTHRITIS
     Route: 041
     Dates: start: 20031009
  7. RHEUMATREX [Concomitant]
     Route: 049
  8. RHEUMATREX [Concomitant]
     Route: 049
  9. ISCOTIN [Concomitant]
     Route: 049
  10. BAKTAR [Concomitant]
     Route: 049
  11. BAKTAR [Concomitant]
     Route: 049
  12. PREDNISOLONE [Concomitant]
     Indication: RHEUMATOID ARTHRITIS
     Route: 049
  13. LIMETHASON [Concomitant]
     Indication: RHEUMATOID ARTHRITIS
     Route: 042
  14. AZULFIDINE [Concomitant]
     Indication: RHEUMATOID ARTHRITIS
     Route: 049
  15. MOBIC [Concomitant]
     Indication: RHEUMATOID ARTHRITIS
     Route: 049
  16. VOLTAREN [Concomitant]
     Indication: RHEUMATOID ARTHRITIS
     Route: 054
  17. FOLIAMIN [Concomitant]
     Route: 049
  18. SCITECH [Concomitant]
     Route: 049
  19. TAKEPRON [Concomitant]
     Route: 049
  20. PYRIDOXAL [Concomitant]
     Route: 049
  21. CHILARGEN [Concomitant]
     Route: 049
  22. BLOPRESS [Concomitant]
     Route: 049
  23. ACTONEL [Concomitant]
     Route: 049
  24. SUPERIOR [Concomitant]
     Route: 049

REACTIONS (3)
  - ATYPICAL MYCOBACTERIAL INFECTION [None]
  - PNEUMONIA [None]
  - THERAPEUTIC RESPONSE DECREASED [None]
